FAERS Safety Report 9321291 (Version 1)
Quarter: 2013Q2

REPORT INFORMATION
  Report Type: Spontaneous
  Country: GB (occurrence: GB)
  Receive Date: 20130531
  Receipt Date: 20130531
  Transmission Date: 20140414
  Serious: Yes (Other)
  Sender: FDA-Public Use
  Company Number: GB-BAYER-2013-066684

PATIENT
  Age: 92 Year
  Sex: Male

DRUGS (1)
  1. AVELOX 400MG/250ML SOLUTION FOR INFUSION [Suspect]
     Dosage: UNK
     Dates: start: 20130527

REACTIONS (1)
  - Glomerular filtration rate abnormal [None]
